FAERS Safety Report 10430027 (Version 1)
Quarter: 2014Q3

REPORT INFORMATION
  Report Type: Spontaneous
  Country: US (occurrence: None)
  Receive Date: 20140903
  Receipt Date: 20140903
  Transmission Date: 20150326
  Serious: Yes (Disabling)
  Sender: FDA-Public Use
  Company Number: None

PATIENT
  Age: 76 Year
  Sex: Female
  Weight: 77.11 kg

DRUGS (1)
  1. CARB/LEVO [Suspect]
     Active Substance: CARBIDOPA\LEVODOPA
     Indication: PARKINSON^S DISEASE
     Dosage: 1 PILL FOUR TIMES DAILY TAKEN BY MOUTH
     Route: 048

REACTIONS (17)
  - Mobility decreased [None]
  - Back pain [None]
  - Product substitution issue [None]
  - Drug effect decreased [None]
  - Visual impairment [None]
  - Headache [None]
  - Clumsiness [None]
  - Dizziness [None]
  - Hallucination, visual [None]
  - Asthenia [None]
  - Product quality issue [None]
  - Limb discomfort [None]
  - Drug effect delayed [None]
  - Hearing impaired [None]
  - Fear [None]
  - Tremor [None]
  - Fatigue [None]
